FAERS Safety Report 25661160 (Version 1)
Quarter: 2025Q3

REPORT INFORMATION
  Report Type: Report from Study
  Country: US (occurrence: US)
  Receive Date: 20250808
  Receipt Date: 20250808
  Transmission Date: 20251020
  Serious: Yes (Other)
  Sender: TAKEDA
  Company Number: US-TAKEDA-2025TUS009759

PATIENT
  Sex: Female
  Weight: 58.9 kg

DRUGS (12)
  1. HUMAN IMMUNOGLOBULIN G [Suspect]
     Active Substance: HUMAN IMMUNOGLOBULIN G
     Indication: Hypergammaglobulinaemia
     Dosage: 18 GRAM, Q2WEEKS
  2. LIDOCAINE [Suspect]
     Active Substance: LIDOCAINE
     Indication: Product used for unknown indication
  3. ACETAMINOPHEN [Concomitant]
     Active Substance: ACETAMINOPHEN
  4. EPINEPHRINE [Concomitant]
     Active Substance: EPINEPHRINE
  5. VITAMIN K [Concomitant]
     Active Substance: PHYTONADIONE
  6. VITAMIN B [Concomitant]
     Active Substance: VITAMIN B
  7. COLLAGENASE [Concomitant]
     Active Substance: COLLAGENASE CLOSTRIDIUM HISTOLYTICUM
  8. DIPHENHYDRAMINE HYDROCHLORIDE [Concomitant]
     Active Substance: DIPHENHYDRAMINE HYDROCHLORIDE
  9. VITAMIN D3 [Concomitant]
     Active Substance: CHOLECALCIFEROL
  10. ZOMIG [Concomitant]
     Active Substance: ZOLMITRIPTAN
  11. CALCIUM [Concomitant]
     Active Substance: CALCIUM
  12. VITAMIN C [Concomitant]
     Active Substance: ASCORBIC ACID

REACTIONS (4)
  - B-cell lymphoma [Unknown]
  - Seasonal allergy [Unknown]
  - Gastrointestinal disorder [Unknown]
  - Infusion site pain [Unknown]
